FAERS Safety Report 14018578 (Version 2)
Quarter: 2017Q4

REPORT INFORMATION
  Report Type: Spontaneous
  Country: DE (occurrence: DE)
  Receive Date: 20170928
  Receipt Date: 20171009
  Transmission Date: 20180321
  Serious: Yes (Other)
  Sender: FDA-Public Use
  Company Number: DE-ACCORD-059231

PATIENT
  Age: 59 Year
  Sex: Male

DRUGS (3)
  1. ATORVASTATIN/ATORVASTATIN CALCIUM [Suspect]
     Active Substance: ATORVASTATIN CALCIUM
     Indication: CORONARY ARTERY DISEASE
     Route: 048
     Dates: start: 201702
  2. SIMVASTATIN. [Suspect]
     Active Substance: SIMVASTATIN
     Indication: PRODUCT USED FOR UNKNOWN INDICATION
  3. ACETYLSALICYLIC ACID [Concomitant]
     Active Substance: ASPIRIN
     Indication: CORONARY ARTERY DISEASE
     Route: 048

REACTIONS (4)
  - General physical health deterioration [Recovering/Resolving]
  - Hepatic enzyme increased [Recovering/Resolving]
  - Somnolence [Recovering/Resolving]
  - Liver disorder [Unknown]

NARRATIVE: CASE EVENT DATE: 201708
